FAERS Safety Report 22142191 (Version 1)
Quarter: 2023Q1

REPORT INFORMATION
  Report Type: Spontaneous
  Country: CN (occurrence: CN)
  Receive Date: 20230327
  Receipt Date: 20230327
  Transmission Date: 20230417
  Serious: Yes (Hospitalization)
  Sender: FDA-Public Use
  Company Number: CN-PFIZER INC-PV202300054612

PATIENT
  Age: 24 Year
  Sex: Female
  Weight: 65 kg

DRUGS (1)
  1. METHOTREXATE SODIUM [Suspect]
     Active Substance: METHOTREXATE SODIUM
     Indication: Ectopic pregnancy
     Dosage: 26 MG, 1X/DAY
     Route: 030
     Dates: start: 20230313, end: 20230317

REACTIONS (15)
  - Oropharyngeal pain [Recovering/Resolving]
  - Vulvovaginal pain [Unknown]
  - Nausea [Unknown]
  - Vulval ulceration [Recovering/Resolving]
  - Pharyngeal erythema [Unknown]
  - Rash [Recovering/Resolving]
  - Oral pain [Recovering/Resolving]
  - Mouth ulceration [Recovering/Resolving]
  - Upper respiratory tract congestion [Unknown]
  - Dizziness [Unknown]
  - Body temperature increased [Unknown]
  - Vulvovaginal erythema [Unknown]
  - Vaginal ulceration [Recovering/Resolving]
  - Palatal ulcer [Unknown]
  - Off label use [Unknown]

NARRATIVE: CASE EVENT DATE: 20230313
